FAERS Safety Report 19755224 (Version 1)
Quarter: 2021Q3

REPORT INFORMATION
  Report Type: Spontaneous
  Country: US (occurrence: US)
  Receive Date: 20210827
  Receipt Date: 20210827
  Transmission Date: 20211014
  Serious: Yes (Hospitalization)
  Sender: FDA-Public Use
  Company Number: None

PATIENT
  Age: 59 Year
  Sex: Male
  Weight: 116.2 kg

DRUGS (2)
  1. NORMAL SALINE [Concomitant]
     Active Substance: SODIUM CHLORIDE
     Dates: start: 20210823, end: 20210823
  2. REGEN?COV [Suspect]
     Active Substance: CASIRIVIMAB\IMDEVIMAB
     Indication: COVID-19 TREATMENT
     Dosage: ?          OTHER FREQUENCY:ONCE;?
     Route: 042
     Dates: start: 20210823, end: 20210823

REACTIONS (5)
  - Peripheral coldness [None]
  - Oxygen saturation decreased [None]
  - Depressed level of consciousness [None]
  - Body temperature increased [None]
  - Infusion related reaction [None]

NARRATIVE: CASE EVENT DATE: 20210823
